FAERS Safety Report 8645792 (Version 2)
Quarter: 2014Q1

REPORT INFORMATION
  Report Type: Spontaneous
  Country: US (occurrence: None)
  Receive Date: 20120323
  Receipt Date: 20130305
  Transmission Date: 20141002
  Serious: Yes (Other)
  Sender: FDA-Public Use
  Company Number: 163-21880-11093082

PATIENT
  Age: 73 Year
  Sex: Female

DRUGS (4)
  1. REVLIMID (LENALIDOMIDE) (CAPSULES) [Suspect]
     Indication: PLASMA CELL MYELOMA
     Route: 048
     Dates: start: 20100826
  2. OMEPRAZOLE MAGNESIUM [Concomitant]
  3. DIOVAN HCT (CO-DIOVAN) [Concomitant]
  4. VELCADE [Concomitant]

REACTIONS (1)
  - Neutropenia [None]
